FAERS Safety Report 14848733 (Version 1)
Quarter: 2018Q2

REPORT INFORMATION
  Report Type: Spontaneous
  Country: DE (occurrence: DE)
  Receive Date: 20180504
  Receipt Date: 20180504
  Transmission Date: 20180711
  Serious: Yes (Other)
  Sender: FDA-Public Use
  Company Number: DE-TOLMAR, INC.-TOLG20180244

PATIENT
  Age: 81 Year
  Sex: Male

DRUGS (2)
  1. IMIQUIMOD. [Suspect]
     Active Substance: IMIQUIMOD
     Dosage: UNKNOWN
     Route: 061
  2. IMIQUIMOD. [Suspect]
     Active Substance: IMIQUIMOD
     Indication: MALIGNANT MELANOMA IN SITU
     Dosage: UNKNOWN
     Route: 061

REACTIONS (5)
  - Pigmentation disorder [Recovered/Resolved]
  - Off label use [None]
  - Treatment failure [Unknown]
  - Skin mass [Unknown]
  - Nodular melanoma [Unknown]

NARRATIVE: CASE EVENT DATE: 201609
